FAERS Safety Report 8983943 (Version 1)
Quarter: 2012Q4

REPORT INFORMATION
  Report Type: Spontaneous
  Country: US (occurrence: None)
  Receive Date: 20121218
  Receipt Date: 20121218
  Transmission Date: 20130627
  Serious: Yes (Disabling)
  Sender: FDA-Public Use
  Company Number: None

PATIENT
  Age: 72 Year
  Sex: Male
  Weight: 86.18 kg

DRUGS (1)
  1. BYDUREON [Suspect]
     Dosage: 2mg Once every 7 days Other
     Route: 050
     Dates: start: 20121009, end: 20121127

REACTIONS (1)
  - Injection site nodule [None]
